FAERS Safety Report 8780030 (Version 1)
Quarter: 2012Q4

REPORT INFORMATION
  Report Type: Spontaneous
  Country: US (occurrence: None)
  Receive Date: 20120831
  Receipt Date: 20120831
  Transmission Date: 20130627
  Serious: Yes (Hospitalization)
  Sender: FDA-Public Use
  Company Number: None

PATIENT
  Age: 61 Year
  Sex: Male
  Weight: 122 kg

DRUGS (2)
  1. DAPTOMYCIN [Suspect]
     Indication: PROSTATE INFECTION
     Route: 042
     Dates: start: 20120730, end: 20120807
  2. DAPTOMYCIN [Suspect]
     Indication: INFECTION MRSA
     Route: 042
     Dates: start: 20120730, end: 20120807

REACTIONS (14)
  - Pulmonary embolism [None]
  - Sepsis [None]
  - Device related infection [None]
  - Eosinophilic pneumonia [None]
  - Interstitial lung disease [None]
  - Organising pneumonia [None]
  - Diffuse alveolar damage [None]
  - Cough [None]
  - Sputum discoloured [None]
  - Crepitations [None]
  - Asthenia [None]
  - Night sweats [None]
  - Body temperature increased [None]
  - Decreased appetite [None]
